FAERS Safety Report 17859069 (Version 1)
Quarter: 2020Q2

REPORT INFORMATION
  Report Type: Spontaneous
  Country: TR (occurrence: TR)
  Receive Date: 20200604
  Receipt Date: 20200604
  Transmission Date: 20200714
  Serious: Yes (Hospitalization, Other)
  Sender: FDA-Public Use
  Company Number: TR-SA-2020SA137639

PATIENT

DRUGS (1)
  1. INDAPAMIDE. [Suspect]
     Active Substance: INDAPAMIDE
     Indication: HYPERTENSION
     Dosage: 1.5 MG, QD

REACTIONS (14)
  - Menstruation irregular [Recovered/Resolved]
  - Hirsutism [Recovered/Resolved]
  - Bone density decreased [Recovered/Resolved]
  - Cushingoid [Recovered/Resolved]
  - Cortisol abnormal [Recovered/Resolved]
  - Pituitary tumour [Recovered/Resolved]
  - Meningioma [Recovered/Resolved]
  - Weight increased [Recovered/Resolved]
  - Central obesity [Recovered/Resolved]
  - Blood potassium decreased [Recovered/Resolved]
  - Muscular weakness [Recovered/Resolved]
  - Skin disorder [Recovered/Resolved]
  - Cortisol decreased [Recovered/Resolved]
  - Cushing^s syndrome [Recovered/Resolved]
